FAERS Safety Report 16025033 (Version 1)
Quarter: 2019Q1

REPORT INFORMATION
  Report Type: Spontaneous
  Country: US (occurrence: US)
  Receive Date: 20190301
  Receipt Date: 20190301
  Transmission Date: 20190418
  Serious: Yes (Other)
  Sender: FDA-Public Use
  Company Number: US-SA-2019SA054538

PATIENT
  Age: 43 Year
  Sex: Female
  Weight: 45.3 kg

DRUGS (3)
  1. PARAPLATIN [Concomitant]
     Active Substance: CARBOPLATIN
  2. TAXOTERE [Suspect]
     Active Substance: DOCETAXEL
     Indication: BREAST CANCER FEMALE
     Dosage: 119 MG, Q3W
     Route: 042
     Dates: start: 20130813, end: 20130813
  3. TAXOTERE [Suspect]
     Active Substance: DOCETAXEL
     Dosage: 119 MG, Q3W
     Route: 042
     Dates: start: 201401, end: 201401

REACTIONS (1)
  - Alopecia [Recovering/Resolving]

NARRATIVE: CASE EVENT DATE: 201308
